FAERS Safety Report 6404618-6 (Version None)
Quarter: 2009Q4

REPORT INFORMATION
  Report Type: 
  Country: None (occurrence: None)
  Receive Date: 20091016
  Receipt Date: 20091005
  Transmission Date: 20100525
  Serious: Yes (Death, Other)
  Sender: FDA-Public Use
  Company Number: CA-GENENTECH-292162

PATIENT
  Sex: Female

DRUGS (2)
  1. AVASTIN [Suspect]
     Indication: BREAST CANCER
     Route: 065
  2. ABRAXANE [Suspect]
     Indication: BREAST CANCER
     Route: 065

REACTIONS (3)
  - DEATH [None]
  - NEOPLASM MALIGNANT [None]
  - PULMONARY EMBOLISM [None]
